FAERS Safety Report 10710243 (Version 1)
Quarter: 2015Q1

REPORT INFORMATION
  Report Type: Spontaneous
  Country: US (occurrence: None)
  Receive Date: 20150112
  Receipt Date: 20150112
  Transmission Date: 20150721
  Serious: Yes (Other)
  Sender: FDA-Public Use
  Company Number: 2015-10106

PATIENT
  Age: 84 Year
  Sex: Female

DRUGS (1)
  1. EYLEA [Suspect]
     Active Substance: AFLIBERCEPT
     Indication: AGE-RELATED MACULAR DEGENERATION
     Dosage: 2 MG MILLIGRAM(S) , Q8W, INTRAOCULAR
     Route: 031

REACTIONS (4)
  - Vision blurred [None]
  - Chorioretinitis [None]
  - Eye inflammation [None]
  - Visual acuity reduced transiently [None]

NARRATIVE: CASE EVENT DATE: 20141113
